FAERS Safety Report 12552650 (Version 1)
Quarter: 2016Q3

REPORT INFORMATION
  Report Type: Spontaneous
  Country: US (occurrence: None)
  Receive Date: 20160712
  Receipt Date: 20160712
  Transmission Date: 20161109
  Serious: Yes (Other)
  Sender: FDA-Public Use
  Company Number: None

PATIENT
  Sex: Female

DRUGS (2)
  1. BUPROPION XL 300MG [Suspect]
     Active Substance: BUPROPION
     Indication: MAJOR DEPRESSION
     Route: 048
     Dates: start: 2008, end: 201008
  2. PRISTIQ EXTENDED-RELEASE [Suspect]
     Active Substance: DESVENLAFAXINE SUCCINATE
     Indication: MAJOR DEPRESSION
     Dosage: PRISTIQ 100 MG ?FREQUENCY - 1AM?ORALLY
     Route: 048
     Dates: start: 201009, end: 201201

REACTIONS (2)
  - Therapy non-responder [None]
  - Medication residue present [None]

NARRATIVE: CASE EVENT DATE: 2008
